FAERS Safety Report 23961644 (Version 1)
Quarter: 2024Q2

REPORT INFORMATION
  Report Type: Spontaneous
  Country: GB (occurrence: GB)
  Receive Date: 20240611
  Receipt Date: 20240611
  Transmission Date: 20240716
  Serious: Yes (Disabling, Other)
  Sender: FDA-Public Use
  Company Number: None

PATIENT
  Sex: Female

DRUGS (1)
  1. ESCITALOPRAM [Suspect]
     Active Substance: ESCITALOPRAM OXALATE
     Indication: Product used for unknown indication
     Dosage: UNKNOWN
     Route: 065

REACTIONS (14)
  - Oedema [Not Recovered/Not Resolved]
  - Erythema [Recovering/Resolving]
  - Tinnitus [Recovering/Resolving]
  - Dyspnoea [Unknown]
  - Cardiovascular disorder [Unknown]
  - Peripheral swelling [Recovering/Resolving]
  - Limb deformity [Recovering/Resolving]
  - Knee deformity [Recovering/Resolving]
  - Dizziness [Unknown]
  - Asthenia [Unknown]
  - Fatigue [Unknown]
  - Fear [Unknown]
  - Therapy cessation [Unknown]
  - Loss of personal independence in daily activities [Unknown]
